FAERS Safety Report 8062125-1 (Version None)
Quarter: 2012Q1

REPORT INFORMATION
  Report Type: 
  Country: None (occurrence: None)
  Receive Date: 20120123
  Receipt Date: 20120110
  Transmission Date: 20120608
  Serious: Yes (Hospitalization, Other)
  Sender: FDA-Public Use
  Company Number: US-ELI_LILLY_AND_COMPANY-US201111000955

PATIENT
  Sex: Female

DRUGS (7)
  1. LIPITOR [Concomitant]
     Dosage: 20 MG, QD
  2. LORTAB [Concomitant]
  3. CALCIUM W/VITAMIN D NOS [Concomitant]
  4. VITAMIN D [Concomitant]
     Dosage: 50000 IU, WEEKLY (1/W)
     Route: 048
  5. TENOLOL [Concomitant]
  6. FORTEO [Suspect]
     Indication: OSTEOPOROSIS
     Dosage: 20 UG, QD
     Dates: start: 20110901, end: 20111007
  7. OXYCODONE AND ACETAMINOPHEN [Concomitant]
     Dosage: UNK, TID
     Route: 048

REACTIONS (7)
  - VISUAL IMPAIRMENT [None]
  - PAIN IN EXTREMITY [None]
  - FEAR [None]
  - DIZZINESS [None]
  - HUMERUS FRACTURE [None]
  - FALL [None]
  - ECCHYMOSIS [None]
